FAERS Safety Report 7679335-5 (Version None)
Quarter: 2011Q3

REPORT INFORMATION
  Report Type: 
  Country: None (occurrence: None)
  Receive Date: 20110812
  Receipt Date: 20110804
  Transmission Date: 20111222
  Serious: Yes (Hospitalization)
  Sender: FDA-Public Use
  Company Number: US-ASTELLAS-2011US004672

PATIENT
  Sex: Female
  Weight: 52 kg

DRUGS (1)
  1. TARCEVA [Suspect]
     Indication: NON-SMALL CELL LUNG CANCER
     Dosage: 150 MG, UID/QD
     Route: 048
     Dates: start: 20110619, end: 20110717

REACTIONS (6)
  - ANAEMIA [None]
  - BLOOD URINE PRESENT [None]
  - NAUSEA [None]
  - HYPOKALAEMIA [None]
  - DIARRHOEA [None]
  - HAEMATEMESIS [None]
